FAERS Safety Report 13962991 (Version 1)
Quarter: 2017Q3

REPORT INFORMATION
  Report Type: Spontaneous
  Country: AU (occurrence: AU)
  Receive Date: 20170913
  Receipt Date: 20170913
  Transmission Date: 20171128
  Serious: No
  Sender: FDA-Public Use
  Company Number: AU-009507513-1709AUS004686

PATIENT

DRUGS (1)
  1. NOVASONE [Suspect]
     Active Substance: MOMETASONE FUROATE
     Indication: MIDDLE EAR EFFUSION
     Dosage: 3 DROPS INTO THE AFFECTED EAR AT NIGHT TIME
     Route: 001

REACTIONS (3)
  - Incorrect route of drug administration [Unknown]
  - Product use in unapproved indication [Unknown]
  - Drug prescribing error [Unknown]
